FAERS Safety Report 7364309-4 (Version None)
Quarter: 2011Q1

REPORT INFORMATION
  Report Type: 
  Country: None (occurrence: None)
  Receive Date: 20110321
  Receipt Date: 20110316
  Transmission Date: 20110831
  Serious: Yes (Other)
  Sender: FDA-Public Use
  Company Number: B0706854A

PATIENT
  Age: 82 Year
  Sex: Male

DRUGS (6)
  1. ELTROXIN [Concomitant]
     Route: 048
  2. FOLIC ACID [Concomitant]
     Dosage: 5MG PER DAY
     Route: 048
     Dates: start: 20110112, end: 20110124
  3. CETIRIZINE HYDROCHLORIDE [Concomitant]
     Dosage: 5MG PER DAY
     Dates: start: 20110131
  4. ARIXTRA [Suspect]
     Dosage: 2.5MG PER DAY
     Route: 058
     Dates: start: 20110110, end: 20110114
  5. CYANOCOBALAMIN [Concomitant]
     Dosage: 1000MCG WEEKLY
     Route: 058
     Dates: start: 20110111
  6. LAXOBERON [Concomitant]
     Dosage: 10MG PER DAY
     Route: 048
     Dates: start: 20110119

REACTIONS (1)
  - URTICARIA [None]
